FAERS Safety Report 7269382-X (Version None)
Quarter: 2011Q1

REPORT INFORMATION
  Report Type: 
  Country: None (occurrence: None)
  Receive Date: 20110124
  Receipt Date: 20110106
  Transmission Date: 20110831
  Serious: Yes (Hospitalization, Other)
  Sender: FDA-Public Use
  Company Number: 2010P1002148

PATIENT
  Age: 32 Year
  Sex: Male

DRUGS (1)
  1. CARBAMAZEPINE [Suspect]
     Indication: BIPOLAR DISORDER
     Dosage: 200 MG;BID;PO
     Dates: start: 20081001, end: 20090217

REACTIONS (15)
  - CONDITION AGGRAVATED [None]
  - ANAEMIA [None]
  - MIGRAINE [None]
  - DYSPHAGIA [None]
  - STEVENS-JOHNSON SYNDROME [None]
  - DERMATITIS CONTACT [None]
  - HEPATIC NECROSIS [None]
  - CONSTIPATION [None]
  - DRY EYE [None]
  - ORAL HERPES [None]
  - RASH PUSTULAR [None]
  - HEPATITIS ACUTE [None]
  - CHILLS [None]
  - DIZZINESS [None]
  - DRUG RASH WITH EOSINOPHILIA AND SYSTEMIC SYMPTOMS [None]
